FAERS Safety Report 9337585 (Version 1)
Quarter: 2013Q2

REPORT INFORMATION
  Report Type: Spontaneous
  Country: US (occurrence: US)
  Receive Date: 20130607
  Receipt Date: 20130607
  Transmission Date: 20140414
  Serious: Yes (Life-Threatening, Hospitalization)
  Sender: FDA-Public Use
  Company Number: US-BAYER-2013-068898

PATIENT
  Age: 17 Year
  Sex: Female
  Weight: 151.02 kg

DRUGS (3)
  1. YASMIN [Suspect]
     Indication: POLYCYSTIC OVARIES
  2. AVANDIA [Concomitant]
  3. SEROQUEL [Concomitant]

REACTIONS (6)
  - Deep vein thrombosis [Recovered/Resolved with Sequelae]
  - Pain in extremity [Recovered/Resolved with Sequelae]
  - Local swelling [Recovered/Resolved with Sequelae]
  - Anxiety [None]
  - Stress [None]
  - Panic attack [None]
